FAERS Safety Report 20222732 (Version 2)
Quarter: 2022Q1

REPORT INFORMATION
  Report Type: Spontaneous
  Country: JP (occurrence: JP)
  Receive Date: 20211223
  Receipt Date: 20220113
  Transmission Date: 20220423
  Serious: Yes (Other)
  Sender: FDA-Public Use
  Company Number: JP-BAYER-2021A271531

PATIENT
  Age: 22 Year
  Sex: Female

DRUGS (1)
  1. YAZ [Suspect]
     Active Substance: DROSPIRENONE\ETHINYL ESTRADIOL
     Indication: Premenstrual syndrome
     Dosage: UNK
     Route: 048

REACTIONS (6)
  - Narcolepsy [Unknown]
  - Somnolence [Unknown]
  - Insomnia [None]
  - Restlessness [None]
  - Fatigue [None]
  - Off label use [None]
